FAERS Safety Report 6655903-4 (Version None)
Quarter: 2010Q1

REPORT INFORMATION
  Report Type: 
  Country: None (occurrence: None)
  Receive Date: 20100326
  Receipt Date: 20100326
  Transmission Date: 20100710
  Serious: Yes (Life-Threatening)
  Sender: FDA-Public Use
  Company Number: None

PATIENT
  Age: 85 Year
  Sex: Female
  Weight: 45.3597 kg

DRUGS (3)
  1. OMEPRAZOLE [Suspect]
     Indication: GASTROOESOPHAGEAL REFLUX DISEASE
     Dosage: 20MG 2XD (FROM KAISER PHARMACY) JAN 31 + FEB 1 STOP FEB 2 OFF 2 DAYS START AGAIN 2/4/10 STOP
     Dates: start: 20100131
  2. OMEPRAZOLE [Suspect]
     Indication: GASTROOESOPHAGEAL REFLUX DISEASE
     Dosage: 20MG 2XD (FROM KAISER PHARMACY) JAN 31 + FEB 1 STOP FEB 2 OFF 2 DAYS START AGAIN 2/4/10 STOP
     Dates: start: 20100201
  3. OMEPRAZOLE [Suspect]
     Indication: GASTROOESOPHAGEAL REFLUX DISEASE
     Dosage: 20MG 2XD (FROM KAISER PHARMACY) JAN 31 + FEB 1 STOP FEB 2 OFF 2 DAYS START AGAIN 2/4/10 STOP
     Dates: start: 20100204

REACTIONS (3)
  - DYSPNOEA [None]
  - MENTAL STATUS CHANGES [None]
  - MORBID THOUGHTS [None]
